FAERS Safety Report 9741769 (Version 2)
Quarter: 2013Q4

REPORT INFORMATION
  Report Type: Spontaneous
  Country: IT (occurrence: IT)
  Receive Date: 20131210
  Receipt Date: 20131213
  Transmission Date: 20140711
  Serious: Yes (Other)
  Sender: FDA-Public Use
  Company Number: IT-ROCHE-1315785

PATIENT
  Age: 82 Year
  Sex: Female

DRUGS (5)
  1. RIVOTRIL [Suspect]
     Indication: ANXIETY
     Route: 048
     Dates: start: 20130921, end: 20130921
  2. RAMIPRIL [Concomitant]
     Indication: PRODUCT USED FOR UNKNOWN INDICATION
     Route: 048
  3. LANSOPRAZOLE [Concomitant]
     Indication: PRODUCT USED FOR UNKNOWN INDICATION
     Route: 048
  4. TACHIDOL [Concomitant]
     Indication: PRODUCT USED FOR UNKNOWN INDICATION
     Route: 048
  5. EUTIROX [Concomitant]
     Indication: PRODUCT USED FOR UNKNOWN INDICATION
     Route: 048

REACTIONS (4)
  - Asthenia [Recovering/Resolving]
  - Somnolence [Recovering/Resolving]
  - Dysstasia [Recovering/Resolving]
  - Accidental overdose [Unknown]
